FAERS Safety Report 6417809-5 (Version None)
Quarter: 2009Q4

REPORT INFORMATION
  Report Type: 
  Country: None (occurrence: None)
  Receive Date: 20091028
  Receipt Date: 20091019
  Transmission Date: 20100525
  Serious: Yes (Hospitalization, Other)
  Sender: FDA-Public Use
  Company Number: BR-AVENTIS-200921929GDDC

PATIENT
  Age: 15 Year
  Sex: Female
  Weight: 53 kg

DRUGS (4)
  1. LANTUS [Suspect]
     Route: 058
  2. LANTUS [Suspect]
     Route: 058
     Dates: start: 20091019, end: 20091019
  3. OPTIPEN (INSULIN PUMP) [Suspect]
  4. HUMALOG [Concomitant]
     Dosage: DOSE: 6 IU AT BREAKFAST,8 IU AT LUNCH, 6 IU FOR SNACK (IN THE AFTERNOON) AND 8 IU AT DINNER
     Route: 058

REACTIONS (9)
  - ASTHENIA [None]
  - BLOOD GLUCOSE INCREASED [None]
  - COMA [None]
  - DEVICE MISUSE [None]
  - HYPERHIDROSIS [None]
  - HYPOGLYCAEMIA [None]
  - KETOACIDOSIS [None]
  - OVERDOSE [None]
  - TREMOR [None]
